FAERS Safety Report 10356232 (Version 2)
Quarter: 2014Q3

REPORT INFORMATION
  Report Type: Spontaneous
  Country: US (occurrence: US)
  Receive Date: 20140801
  Receipt Date: 20140905
  Transmission Date: 20150326
  Serious: Yes (Hospitalization)
  Sender: FDA-Public Use
  Company Number: US-BEH-2014044188

PATIENT
  Age: 18 Year
  Sex: Male

DRUGS (4)
  1. BERINERT [Suspect]
     Active Substance: HUMAN C1-ESTERASE INHIBITOR
     Indication: PROPHYLAXIS
     Dosage: SINCE MAR-2012
     Route: 042
     Dates: start: 20140728
  2. OXANDROLONE. [Concomitant]
     Active Substance: OXANDROLONE
     Indication: HEREDITARY ANGIOEDEMA
  3. BERINERT [Suspect]
     Active Substance: HUMAN C1-ESTERASE INHIBITOR
     Indication: HEREDITARY ANGIOEDEMA
     Dosage: SINCE MAR-2012
     Route: 042
     Dates: start: 20140715
  4. BERINERT [Suspect]
     Active Substance: HUMAN C1-ESTERASE INHIBITOR
     Indication: PROPHYLAXIS
     Dosage: SINCE MAR-2012
     Route: 042
     Dates: start: 20140722

REACTIONS (3)
  - Haematemesis [Recovered/Resolved]
  - White blood cell count increased [Recovered/Resolved]
  - Vomiting [Recovered/Resolved]

NARRATIVE: CASE EVENT DATE: 201407
